FAERS Safety Report 6115434-7 (Version None)
Quarter: 2009Q1

REPORT INFORMATION
  Report Type: 
  Country: None (occurrence: None)
  Receive Date: 20090313
  Receipt Date: 20090303
  Transmission Date: 20090719
  Serious: Yes (Hospitalization, Other)
  Sender: FDA-Public Use
  Company Number: BR-AVENTIS-200910880EU

PATIENT
  Age: 40 Year
  Sex: Female
  Weight: 102 kg

DRUGS (11)
  1. GARDENALE                          /00023202/ [Suspect]
     Indication: CONVULSION
     Dosage: DOSE: UNK
     Route: 048
     Dates: start: 20050101
  2. GARDENALE                          /00023202/ [Suspect]
     Route: 048
  3. LASIX [Suspect]
     Dosage: DOSE: UNK
     Route: 042
     Dates: start: 20081224, end: 20081227
  4. FRONTAL [Suspect]
     Indication: CONVULSION
     Dosage: DOSE: UNK
  5. LORAX                              /00273201/ [Suspect]
     Indication: CONVULSION
     Dosage: DOSE: UNK
  6. VERTIZINE [Concomitant]
     Dosage: DOSE: UNK
  7. LOSARTAN POTASSIUM [Concomitant]
     Dosage: DOSE: 1 TABLET
     Route: 048
  8. LOSARTAN POTASSIUM [Concomitant]
     Dosage: DOSE: 2 TABLETS
     Route: 048
  9. HYDROCHLOROTHIAZIDE [Concomitant]
     Dosage: DOSE: UNK
  10. HYDERGINE                          /00028501/ [Concomitant]
     Dosage: DOSE: UNK
  11. CLOBAZAM /ELUM [Concomitant]

REACTIONS (15)
  - BRAIN SCAN ABNORMAL [None]
  - CONSTIPATION [None]
  - DYSURIA [None]
  - EATING DISORDER [None]
  - FEELING ABNORMAL [None]
  - HYPERSENSITIVITY [None]
  - HYPERTENSION [None]
  - MUSCLE SPASMS [None]
  - NAUSEA [None]
  - PAIN IN EXTREMITY [None]
  - RENAL DISORDER [None]
  - RESPIRATORY ARREST [None]
  - SOMNOLENCE [None]
  - VISUAL IMPAIRMENT [None]
  - WEIGHT INCREASED [None]
